FAERS Safety Report 24444994 (Version 4)
Quarter: 2025Q3

REPORT INFORMATION
  Report Type: Report from Study
  Country: US (occurrence: US)
  Receive Date: 20241016
  Receipt Date: 20250810
  Transmission Date: 20251021
  Serious: Yes (Hospitalization)
  Sender: ALEXION PHARMACEUTICALS
  Company Number: US-AstraZeneca-CH-00725848A

PATIENT
  Sex: Male

DRUGS (1)
  1. SOLIRIS [Suspect]
     Active Substance: ECULIZUMAB
     Indication: Myasthenia gravis
     Route: 065

REACTIONS (6)
  - Dysphonia [Unknown]
  - Aphonia [Unknown]
  - Eating disorder [Unknown]
  - Dysphagia [Not Recovered/Not Resolved]
  - Oesophageal disorder [Unknown]
  - Speech disorder [Unknown]
